FAERS Safety Report 6212012-6 (Version None)
Quarter: 2009Q2

REPORT INFORMATION
  Report Type: 
  Country: None (occurrence: None)
  Receive Date: 20090602
  Receipt Date: 20090520
  Transmission Date: 20091009
  Serious: Yes (Other)
  Sender: FDA-Public Use
  Company Number: US-PFIZER INC-2009216877

PATIENT
  Sex: Male
  Weight: 79.378 kg

DRUGS (1)
  1. NARDIL [Suspect]
     Indication: DEPRESSION
     Dosage: UNK

REACTIONS (3)
  - COLONOSCOPY [None]
  - DIABETES MELLITUS [None]
  - IMPLANTABLE DEFIBRILLATOR INSERTION [None]
